FAERS Safety Report 7943148-7 (Version None)
Quarter: 2011Q4

REPORT INFORMATION
  Report Type: 
  Country: None (occurrence: None)
  Receive Date: 20111128
  Receipt Date: 20111116
  Transmission Date: 20120403
  Serious: Yes (Other)
  Sender: FDA-Public Use
  Company Number: PHHY2011PL101797

PATIENT
  Sex: Female

DRUGS (5)
  1. IMURAN [Concomitant]
     Indication: RENAL TRANSPLANT
     Dates: end: 20100101
  2. CERTICAN [Concomitant]
     Dosage: 0.5 MG, QD
     Dates: start: 20100101
  3. NEORAL [Suspect]
     Dosage: 100 MG, QD
  4. PREDNISONE [Suspect]
     Indication: RENAL TRANSPLANT
     Dates: end: 20090101
  5. NEORAL [Suspect]
     Indication: RENAL TRANSPLANT
     Dosage: 225 MG, QD

REACTIONS (1)
  - OSTEOPOROSIS [None]
